FAERS Safety Report 22234307 (Version 1)
Quarter: 2023Q2

REPORT INFORMATION
  Report Type: Spontaneous
  Country: US (occurrence: None)
  Receive Date: 20230418
  Receipt Date: 20230418
  Transmission Date: 20230721
  Serious: Yes (Hospitalization)
  Sender: FDA-Public Use
  Company Number: None

PATIENT
  Sex: Female

DRUGS (1)
  1. VERZENIO [Suspect]
     Active Substance: ABEMACICLIB
     Indication: Breast cancer female
     Dosage: 150MG TWICE DAILY ORAL
     Route: 048
     Dates: start: 202302

REACTIONS (3)
  - Vomiting [None]
  - Diarrhoea [None]
  - Renal disorder [None]

NARRATIVE: CASE EVENT DATE: 20230412
